FAERS Safety Report 20517136 (Version 1)
Quarter: 2022Q1

REPORT INFORMATION
  Report Type: Report from Study
  Country: DE (occurrence: DE)
  Receive Date: 20220225
  Receipt Date: 20220225
  Transmission Date: 20220423
  Serious: Yes (Death, Hospitalization, Other)
  Sender: FDA-Public Use
  Company Number: DE-ALS-000531

PATIENT
  Age: 80 Year
  Sex: Female

DRUGS (1)
  1. METFORMIN [Suspect]
     Active Substance: METFORMIN HYDROCHLORIDE
     Indication: Type 2 diabetes mellitus
     Route: 065

REACTIONS (11)
  - Lactic acidosis [Fatal]
  - Loss of consciousness [Unknown]
  - Hypoglycaemia [Unknown]
  - Pneumonia [Fatal]
  - Acute kidney injury [Unknown]
  - Metabolic disorder [Recovered/Resolved]
  - Continuous haemodiafiltration [Unknown]
  - Inflammation [Unknown]
  - Multiple organ dysfunction syndrome [Fatal]
  - Renal replacement therapy [Unknown]
  - Toxicity to various agents [Unknown]
